FAERS Safety Report 7354357-2 (Version None)
Quarter: 2011Q1

REPORT INFORMATION
  Report Type: 
  Country: None (occurrence: None)
  Receive Date: 20110316
  Receipt Date: 20110304
  Transmission Date: 20110831
  Serious: Yes (Life-Threatening)
  Sender: FDA-Public Use
  Company Number: IT-JNJFOC-20110302684

PATIENT
  Age: 46 Year
  Sex: Female

DRUGS (3)
  1. REMICADE [Suspect]
     Indication: PROCTOCOLITIS
     Route: 042
  2. DELTACORTENE [Concomitant]
     Route: 048
  3. AZATIOPRINA [Concomitant]
     Route: 048

REACTIONS (4)
  - RESPIRATORY FAILURE [None]
  - GRAND MAL CONVULSION [None]
  - LOSS OF CONSCIOUSNESS [None]
  - BRAIN ABSCESS [None]
